FAERS Safety Report 5648565-6 (Version None)
Quarter: 2008Q1

REPORT INFORMATION
  Report Type: 
  Country: None (occurrence: None)
  Receive Date: 20080304
  Receipt Date: 20080303
  Transmission Date: 20080703
  Serious: Yes (Other)
  Sender: FDA-Public Use
  Company Number: A0707080A

PATIENT
  Age: 47 Year
  Sex: Female

DRUGS (1)
  1. ALLI [Suspect]
     Indication: WEIGHT LOSS DIET
     Route: 048
     Dates: start: 20070701

REACTIONS (10)
  - ASTHENOPIA [None]
  - BLINDNESS [None]
  - DRY EYE [None]
  - EYE IRRITATION [None]
  - HYPERSENSITIVITY [None]
  - ILL-DEFINED DISORDER [None]
  - INSOMNIA [None]
  - PHARMACEUTICAL PRODUCT COMPLAINT [None]
  - SINUSITIS [None]
  - STEATORRHOEA [None]
